FAERS Safety Report 21986902 (Version 2)
Quarter: 2023Q1

REPORT INFORMATION
  Report Type: Spontaneous
  Country: DE (occurrence: DE)
  Receive Date: 20230213
  Receipt Date: 20230308
  Transmission Date: 20230418
  Serious: Yes (Life-Threatening)
  Sender: FDA-Public Use
  Company Number: DE-DSJP-DSE-2023-104951

PATIENT
  Age: 50 Year
  Sex: Male

DRUGS (2)
  1. ENHERTU [Suspect]
     Active Substance: FAM-TRASTUZUMAB DERUXTECAN-NXKI
     Indication: Colorectal cancer metastatic
     Dosage: 5.4 MG/KG
     Route: 042
     Dates: start: 20230202, end: 20230202
  2. ENHERTU [Suspect]
     Active Substance: FAM-TRASTUZUMAB DERUXTECAN-NXKI
     Dosage: 5.4 MG/KG
     Route: 042
     Dates: start: 2023

REACTIONS (3)
  - Cardiac arrest [Recovered/Resolved]
  - Infusion related reaction [Recovered/Resolved]
  - Off label use [Not Recovered/Not Resolved]

NARRATIVE: CASE EVENT DATE: 20230202
